FAERS Safety Report 7003574-X (Version None)
Quarter: 2010Q3

REPORT INFORMATION
  Report Type: 
  Country: None (occurrence: None)
  Receive Date: 20100920
  Receipt Date: 20100910
  Transmission Date: 20110219
  Serious: Yes (Hospitalization, Other)
  Sender: FDA-Public Use
  Company Number: US-AMGEN-QUU432920

PATIENT
  Sex: Male
  Weight: 121.6 kg

DRUGS (8)
  1. NPLATE [Suspect]
     Indication: IDIOPATHIC THROMBOCYTOPENIC PURPURA
     Route: 058
     Dates: start: 20090827, end: 20100506
  2. ASPIRIN [Concomitant]
  3. METFORMIN [Concomitant]
  4. DIGOXIN [Concomitant]
  5. METOPROLOL [Concomitant]
  6. CALCIUM [Concomitant]
  7. ALLOPURINOL [Concomitant]
  8. COUMADIN [Concomitant]

REACTIONS (5)
  - ANAEMIA [None]
  - CORONARY ARTERY DISEASE [None]
  - DYSPNOEA [None]
  - ISCHAEMIC CARDIOMYOPATHY [None]
  - MITRAL VALVE INCOMPETENCE [None]
